FAERS Safety Report 4815167-0 (Version None)
Quarter: 2005Q4

REPORT INFORMATION
  Report Type: 
  Country: None (occurrence: None)
  Receive Date: 20051027
  Receipt Date: 20051024
  Transmission Date: 20060501
  Serious: Yes (Other)
  Sender: FDA-Public Use
  Company Number: 142506USA

PATIENT
  Age: 44 Year
  Sex: Female

DRUGS (8)
  1. COPAXONE [Suspect]
     Indication: MULTIPLE SCLEROSIS
     Dosage: 20 MILLIGRAM QD SUBCUTANEOUS
     Route: 058
     Dates: start: 20040224
  2. TEGRETOL [Concomitant]
  3. NEURONTIN [Concomitant]
  4. ESTRACE [Concomitant]
  5. KLONOPIN [Concomitant]
  6. ZOLOFT [Concomitant]
  7. MOBIC [Concomitant]
  8. FOSAMAX [Concomitant]

REACTIONS (4)
  - DRUG INTERACTION [None]
  - INJECTION SITE SWELLING [None]
  - INJECTION SITE ULCER [None]
  - WRONG TECHNIQUE IN DRUG USAGE PROCESS [None]
